FAERS Safety Report 4689865-6 (Version None)
Quarter: 2005Q2

REPORT INFORMATION
  Report Type: 
  Country: None (occurrence: None)
  Receive Date: 20050613
  Receipt Date: 20050613
  Transmission Date: 20051028
  Serious: Yes (Disabling)
  Sender: FDA-Public Use
  Company Number: None

PATIENT
  Age: 41 Year
  Sex: Female
  Weight: 99.7913 kg

DRUGS (1)
  1. CYMBALTA [Suspect]
     Indication: DEPRESSION
     Dosage: 30 MG   1X DAY   ORAL
     Route: 048
     Dates: start: 20041226, end: 20050114

REACTIONS (2)
  - RETINAL DETACHMENT [None]
  - VISUAL ACUITY REDUCED [None]
